FAERS Safety Report 13965769 (Version 4)
Quarter: 2017Q4

REPORT INFORMATION
  Report Type: Report from Study
  Country: CA (occurrence: CA)
  Receive Date: 20170913
  Receipt Date: 20171129
  Transmission Date: 20180320
  Serious: Yes (Hospitalization, Other)
  Sender: FDA-Public Use
  Company Number: CA-JNJFOC-20170827481

PATIENT
  Age: 77 Year
  Sex: Female
  Weight: 73 kg

DRUGS (37)
  1. SIMPONI [Suspect]
     Active Substance: GOLIMUMAB
     Indication: RHEUMATOID ARTHRITIS
     Dosage: 14TH TREATMENT
     Route: 042
     Dates: start: 20170704
  2. AMLODIPINE [Concomitant]
     Active Substance: AMLODIPINE BESYLATE
     Route: 048
  3. PREGABALIN. [Concomitant]
     Active Substance: PREGABALIN
     Route: 048
  4. METHOTREXATE. [Concomitant]
     Active Substance: METHOTREXATE
     Route: 048
  5. VITALUX [Concomitant]
     Active Substance: MINERALS\VITAMINS
     Route: 048
  6. LIQUICAL [Concomitant]
     Route: 048
  7. OXYCODONE [Concomitant]
     Active Substance: OXYCODONE
     Route: 048
  8. EURO FOLIC [Concomitant]
     Active Substance: FOLIC ACID
     Route: 048
  9. EURO FOLIC [Concomitant]
     Active Substance: FOLIC ACID
     Route: 048
  10. RALOXIFENE. [Concomitant]
     Active Substance: RALOXIFENE
     Route: 048
  11. ACIDE FOLIQUE [Concomitant]
     Active Substance: FOLIC ACID
     Route: 048
  12. PANTOPRAZOLE [Concomitant]
     Active Substance: PANTOPRAZOLE
     Route: 048
  13. AMITRIPTYLINE [Concomitant]
     Active Substance: AMITRIPTYLINE
     Route: 048
  14. CITALOPRAM [Concomitant]
     Active Substance: CITALOPRAM HYDROBROMIDE
     Route: 048
  15. VITALUX [Concomitant]
     Active Substance: MINERALS\VITAMINS
     Route: 048
  16. ACETAMINOPHEN. [Concomitant]
     Active Substance: ACETAMINOPHEN
     Route: 048
  17. VOLTAREN [Concomitant]
     Active Substance: DICLOFENAC SODIUM
     Route: 061
  18. OXAZEPAM. [Concomitant]
     Active Substance: OXAZEPAM
     Route: 048
  19. PANTOPRAZOLE [Concomitant]
     Active Substance: PANTOPRAZOLE
     Route: 048
  20. OXYCODONE [Concomitant]
     Active Substance: OXYCODONE
     Route: 048
  21. OXYCODONE [Concomitant]
     Active Substance: OXYCODONE
     Route: 048
  22. DOCUSATE [Concomitant]
     Active Substance: DOCUSATE
     Route: 048
  23. SENNATAB [Concomitant]
     Route: 048
  24. ACETYLSALICYLIC ACID [Concomitant]
     Active Substance: ASPIRIN
     Route: 048
  25. SYNTHROID [Concomitant]
     Active Substance: LEVOTHYROXINE SODIUM
     Route: 048
  26. CITALOPRAM [Concomitant]
     Active Substance: CITALOPRAM HYDROBROMIDE
     Route: 048
  27. ACIDE FOLIQUE [Concomitant]
     Active Substance: FOLIC ACID
     Route: 048
  28. SIMPONI [Suspect]
     Active Substance: GOLIMUMAB
     Indication: RHEUMATOID ARTHRITIS
     Dosage: 15TH TREATMENT
     Route: 042
     Dates: start: 20171004
  29. RALOXIFENE. [Concomitant]
     Active Substance: RALOXIFENE
     Route: 048
  30. PREGABALIN. [Concomitant]
     Active Substance: PREGABALIN
     Route: 048
  31. PANTOPRAZOLE [Concomitant]
     Active Substance: PANTOPRAZOLE
     Route: 048
  32. VITAMIN D [Concomitant]
     Active Substance: CHOLECALCIFEROL
     Route: 048
  33. VITAMIN D [Concomitant]
     Active Substance: CHOLECALCIFEROL
     Route: 048
  34. LIQUICAL [Concomitant]
     Route: 048
  35. SIMPONI [Suspect]
     Active Substance: GOLIMUMAB
     Indication: RHEUMATOID ARTHRITIS
     Route: 042
     Dates: start: 20150714
  36. VITAMIN B12 [Concomitant]
     Active Substance: CYANOCOBALAMIN
     Route: 048
  37. VOLTAREN [Concomitant]
     Active Substance: DICLOFENAC SODIUM
     Route: 048

REACTIONS (3)
  - Fall [Unknown]
  - Pneumonia [Not Recovered/Not Resolved]
  - Bronchitis [Not Recovered/Not Resolved]

NARRATIVE: CASE EVENT DATE: 201708
